FAERS Safety Report 21212877 (Version 5)
Quarter: 2022Q4

REPORT INFORMATION
  Report Type: Report from Study
  Country: GB (occurrence: GB)
  Receive Date: 20220815
  Receipt Date: 20221209
  Transmission Date: 20230113
  Serious: Yes (Hospitalization)
  Sender: FDA-Public Use
  Company Number: GB-JNJFOC-20220534823

PATIENT
  Age: 62 Year
  Sex: Female
  Weight: 68 kg

DRUGS (22)
  1. DARATUMUMAB [Suspect]
     Active Substance: DARATUMUMAB
     Indication: Plasma cell myeloma
     Dosage: MOST RECENT DOSE 28/APR/2022
     Route: 058
     Dates: start: 20211112, end: 20220428
  2. APIXABAN [Concomitant]
     Active Substance: APIXABAN
     Indication: Thrombosis prophylaxis
     Route: 048
     Dates: start: 20211112, end: 20220518
  3. APIXABAN [Concomitant]
     Active Substance: APIXABAN
     Route: 048
     Dates: start: 20220527, end: 20221009
  4. CLODRONIC ACID [Concomitant]
     Active Substance: CLODRONIC ACID
     Indication: Prophylaxis
     Route: 048
     Dates: start: 20220516
  5. CLODRONIC ACID [Concomitant]
     Active Substance: CLODRONIC ACID
     Indication: Prophylaxis
     Route: 048
     Dates: end: 20220515
  6. SENNA LEAF [Concomitant]
     Active Substance: SENNA LEAF
     Indication: Constipation prophylaxis
     Route: 048
     Dates: start: 20220516, end: 20220801
  7. GABAPENTIN [Concomitant]
     Active Substance: GABAPENTIN
     Indication: Peripheral sensory neuropathy
     Route: 048
     Dates: start: 20220515
  8. GABAPENTIN [Concomitant]
     Active Substance: GABAPENTIN
     Indication: Neuralgia
     Route: 048
     Dates: start: 20220515
  9. GABAPENTIN [Concomitant]
     Active Substance: GABAPENTIN
     Route: 048
     Dates: start: 20190101
  10. ACETAMINOPHEN [Concomitant]
     Active Substance: ACETAMINOPHEN
     Indication: Peripheral sensory neuropathy
     Route: 048
     Dates: start: 20220516, end: 20220522
  11. ACETAMINOPHEN [Concomitant]
     Active Substance: ACETAMINOPHEN
     Indication: Pneumonia parainfluenzae viral
  12. CALCIUM CHLORIDE\POTASSIUM CHLORIDE\SODIUM CHLORIDE\SODIUM LACTATE [Concomitant]
     Active Substance: CALCIUM CHLORIDE\POTASSIUM CHLORIDE\SODIUM CHLORIDE\SODIUM LACTATE
     Indication: Prophylaxis against dehydration
     Route: 042
     Dates: start: 20220516, end: 20220516
  13. CODEINE [Concomitant]
     Active Substance: CODEINE
     Indication: Peripheral sensory neuropathy
     Route: 048
     Dates: start: 20220519, end: 20220521
  14. ENOXAPARIN [Concomitant]
     Active Substance: ENOXAPARIN
     Indication: Thrombosis prophylaxis
     Route: 058
     Dates: start: 20220522, end: 20220526
  15. BUTYLSCOPOLAMINE BROMIDE [Concomitant]
     Active Substance: BUTYLSCOPOLAMINE BROMIDE
     Indication: Prophylaxis
     Route: 048
     Dates: start: 20220523, end: 20220523
  16. ALTEPLASE [Concomitant]
     Active Substance: ALTEPLASE
     Indication: Catheter management
     Route: 050
     Dates: start: 20220525, end: 20220525
  17. COCODAMOL [Concomitant]
     Active Substance: ACETAMINOPHEN\CODEINE PHOSPHATE
     Indication: Peripheral sensory neuropathy
     Dosage: 30/500
     Route: 048
     Dates: start: 20220515
  18. CLODRONIC ACID [Concomitant]
     Active Substance: CLODRONIC ACID
     Indication: Prophylaxis
     Route: 048
     Dates: start: 20220515
  19. AMLODIPINE [Concomitant]
     Active Substance: AMLODIPINE BESYLATE
     Indication: Hypertension
     Route: 048
     Dates: start: 20220706, end: 20220706
  20. SERTRALINE [Concomitant]
     Active Substance: SERTRALINE HYDROCHLORIDE
     Indication: Depression
     Route: 048
     Dates: start: 20040101
  21. LETROZOLE [Concomitant]
     Active Substance: LETROZOLE
     Indication: Intraductal proliferative breast lesion
     Route: 048
     Dates: start: 20190201
  22. ACYCLOVIR [Concomitant]
     Active Substance: ACYCLOVIR
     Indication: Antiviral prophylaxis
     Route: 048

REACTIONS (1)
  - Pneumonia parainfluenzae viral [Recovered/Resolved]

NARRATIVE: CASE EVENT DATE: 20220516
